FAERS Safety Report 14511618 (Version 2)
Quarter: 2018Q1

REPORT INFORMATION
  Report Type: Spontaneous
  Country: BE (occurrence: BE)
  Receive Date: 20180209
  Receipt Date: 20180216
  Transmission Date: 20180509
  Serious: Yes (Hospitalization)
  Sender: FDA-Public Use
  Company Number: BE-CELLTRION INC.-2018BE017754

PATIENT

DRUGS (1)
  1. INFLIXIMAB (UNKNOWN) [Suspect]
     Active Substance: INFLIXIMAB
     Indication: COLITIS ULCERATIVE
     Route: 065

REACTIONS (6)
  - Respiratory failure [Recovered/Resolved]
  - Chest pain [Recovered/Resolved]
  - Lung abscess [Recovered/Resolved]
  - Sepsis [Recovered/Resolved]
  - Legionella infection [Recovered/Resolved]
  - Dyspnoea [Recovered/Resolved]
